FAERS Safety Report 7404166-0 (Version None)
Quarter: 2011Q2

REPORT INFORMATION
  Report Type: 
  Country: None (occurrence: None)
  Receive Date: 20110408
  Receipt Date: 20110316
  Transmission Date: 20111010
  Serious: No
  Sender: FDA-Public Use
  Company Number: US-B.I. PHARMACEUTICALS,INC./RIDGEFIELD-2011-BP-08483BP

PATIENT
  Sex: Female

DRUGS (7)
  1. SYNTHROID [Concomitant]
     Indication: HYPOTHYROIDISM
  2. ATENOLOL [Concomitant]
     Indication: HYPERTENSION
  3. CRESTOR [Concomitant]
     Indication: BLOOD CHOLESTEROL INCREASED
  4. VITAMINS [Concomitant]
     Indication: PROPHYLAXIS
  5. PRADAXA [Suspect]
     Indication: ATRIAL FIBRILLATION
     Dosage: 300 MG
     Route: 048
     Dates: start: 20101201
  6. ASPIRIN [Concomitant]
     Indication: PROPHYLAXIS
  7. FISH OIL [Concomitant]
     Indication: PROPHYLAXIS

REACTIONS (1)
  - FEELING COLD [None]
